FAERS Safety Report 25390621 (Version 1)
Quarter: 2025Q2

REPORT INFORMATION
  Report Type: Spontaneous
  Country: FR (occurrence: FR)
  Receive Date: 20250603
  Receipt Date: 20250603
  Transmission Date: 20250716
  Serious: Yes (Hospitalization)
  Sender: CHEPLAPHARM
  Company Number: None

PATIENT
  Age: 77 Year
  Sex: Male
  Weight: 76 kg

DRUGS (16)
  1. HYDROXYUREA [Suspect]
     Active Substance: HYDROXYUREA
     Indication: Chronic myeloid leukaemia
     Dosage: DAILY DOSE: 1500 MILLIGRAM
     Route: 048
     Dates: start: 20250415, end: 20250422
  2. ICLUSIG [Suspect]
     Active Substance: PONATINIB HYDROCHLORIDE
     Indication: Chronic myeloid leukaemia
     Dosage: DAILY DOSE: 45 MILLIGRAM
     Route: 048
     Dates: start: 20250418, end: 20250422
  3. PANTOPRAZOLE SODIUM [Suspect]
     Active Substance: PANTOPRAZOLE SODIUM
     Indication: Pulmonary sepsis
     Dosage: DAILY DOSE: 20 MILLIGRAM
     Route: 048
     Dates: start: 20250414, end: 20250424
  4. PANTOPRAZOLE SODIUM [Suspect]
     Active Substance: PANTOPRAZOLE SODIUM
     Indication: Acute respiratory failure
     Dosage: DAILY DOSE: 20 MILLIGRAM
     Route: 048
     Dates: start: 20250414, end: 20250424
  5. PANTOPRAZOLE SODIUM [Suspect]
     Active Substance: PANTOPRAZOLE SODIUM
     Indication: Cardiac failure
     Dosage: DAILY DOSE: 20 MILLIGRAM
     Route: 048
     Dates: start: 20250414, end: 20250424
  6. PANTOPRAZOLE SODIUM [Suspect]
     Active Substance: PANTOPRAZOLE SODIUM
     Indication: Gastrooesophageal reflux disease
     Dosage: DAILY DOSE: 20 MILLIGRAM
     Route: 048
     Dates: start: 20250414, end: 20250424
  7. ELIQUIS [Concomitant]
     Active Substance: APIXABAN
  8. FLECAINIDE [Concomitant]
     Active Substance: FLECAINIDE
  9. BISOPROLOL FUMARATE [Concomitant]
     Active Substance: BISOPROLOL FUMARATE
  10. ZOPICLONE [Concomitant]
     Active Substance: ZOPICLONE
  11. METOCLOPRAMIDE [Concomitant]
     Active Substance: METOCLOPRAMIDE
  12. Loxen [Concomitant]
  13. VITAMIN K [Concomitant]
     Active Substance: PHYTONADIONE
  14. FOLIC ACID [Concomitant]
     Active Substance: FOLIC ACID
  15. KAYEXALATE [Concomitant]
     Active Substance: SODIUM POLYSTYRENE SULFONATE
  16. ESOMEPRAZOLE [Concomitant]
     Active Substance: ESOMEPRAZOLE

REACTIONS (2)
  - Acute generalised exanthematous pustulosis [Recovered/Resolved]
  - Pancytopenia [Recovered/Resolved]

NARRATIVE: CASE EVENT DATE: 20250422
